FAERS Safety Report 26213502 (Version 1)
Quarter: 2025Q4

REPORT INFORMATION
  Report Type: Spontaneous
  Country: US (occurrence: US)
  Receive Date: 20251230
  Receipt Date: 20251230
  Transmission Date: 20260118
  Serious: Yes (Life-Threatening, Hospitalization)
  Sender: MYLAN
  Company Number: US-MYLANLABS-2025M1111355

PATIENT
  Age: 78 Year
  Sex: Female

DRUGS (4)
  1. METHIMAZOLE [Suspect]
     Active Substance: METHIMAZOLE
     Indication: Hyperthyroidism
     Dosage: UNK
  2. METHIMAZOLE [Suspect]
     Active Substance: METHIMAZOLE
     Dosage: UNK
     Route: 065
  3. METHIMAZOLE [Suspect]
     Active Substance: METHIMAZOLE
     Dosage: UNK
     Route: 065
  4. METHIMAZOLE [Suspect]
     Active Substance: METHIMAZOLE
     Dosage: UNK

REACTIONS (1)
  - Drug ineffective [Unknown]
